FAERS Safety Report 5751071-1 (Version None)
Quarter: 2008Q2

REPORT INFORMATION
  Report Type: 
  Country: None (occurrence: None)
  Receive Date: 20080527
  Receipt Date: 20080128
  Transmission Date: 20081010
  Serious: No
  Sender: FDA-Public Use
  Company Number: 2008SP002055

PATIENT
  Age: 39 Year
  Sex: Female
  Weight: 67.586 kg

DRUGS (1)
  1. NOXAFIL [Suspect]
     Indication: DRUG USE FOR UNKNOWN INDICATION
     Dosage: 200 MG;Q6H;PO
     Route: 048
     Dates: start: 20071205, end: 20071213

REACTIONS (1)
  - DERMATITIS [None]
